FAERS Safety Report 20914312 (Version 1)
Quarter: 2022Q2

REPORT INFORMATION
  Report Type: Spontaneous
  Country: US (occurrence: US)
  Receive Date: 20220604
  Receipt Date: 20220604
  Transmission Date: 20220721
  Serious: No
  Sender: FDA-Public Use
  Company Number: US-SA-SAC20220523001463

PATIENT
  Age: 63 Year
  Sex: Female
  Weight: 71.66 kg

DRUGS (4)
  1. DUPIXENT [Suspect]
     Active Substance: DUPILUMAB
     Dosage: 300 MG, QOW
     Route: 058
  2. RINVOQ [Concomitant]
     Active Substance: UPADACITINIB
  3. VITAMINS [Concomitant]
     Active Substance: VITAMINS
  4. MODERNA COVID-19 VACCINE [Concomitant]
     Active Substance: ELASOMERAN
     Indication: Immunisation

REACTIONS (1)
  - Drug hypersensitivity [Unknown]
